FAERS Safety Report 5445437-7 (Version None)
Quarter: 2007Q3

REPORT INFORMATION
  Report Type: 
  Country: None (occurrence: None)
  Receive Date: 20070906
  Receipt Date: 20070706
  Transmission Date: 20080115
  Serious: No
  Sender: FDA-Public Use
  Company Number: A0662210A

PATIENT
  Age: 43 Year
  Sex: Female

DRUGS (14)
  1. REQUIP [Suspect]
     Indication: RESTLESS LEGS SYNDROME
     Dosage: 1MG PER DAY
     Route: 048
     Dates: start: 20070627
  2. PROZAC [Concomitant]
  3. OXYGEN [Concomitant]
  4. VALIUM [Concomitant]
  5. PERCOCET [Concomitant]
  6. PROMETHAZINE [Concomitant]
  7. KLONOPIN [Concomitant]
  8. ADVAIR DISKUS 100/50 [Concomitant]
  9. PREVACID [Concomitant]
  10. XOPENEX [Concomitant]
  11. ALBUTEROL [Concomitant]
  12. AMBIEN [Concomitant]
  13. FIORICET [Concomitant]
  14. CHANTIX [Concomitant]

REACTIONS (1)
  - WEIGHT DECREASED [None]
